FAERS Safety Report 5900042-0 (Version None)
Quarter: 2008Q3

REPORT INFORMATION
  Report Type: 
  Country: None (occurrence: None)
  Receive Date: 20080926
  Receipt Date: 20080922
  Transmission Date: 20090109
  Serious: Yes (Hospitalization)
  Sender: FDA-Public Use
  Company Number: ES-AVENTIS-200815094EU

PATIENT
  Age: 54 Year
  Sex: Female

DRUGS (6)
  1. FUROSEMIDE [Suspect]
     Route: 048
     Dates: end: 20080728
  2. SPIRONOLACTONE [Suspect]
     Route: 048
     Dates: start: 20080721, end: 20080728
  3. CABERGOLINE [Concomitant]
     Route: 048
  4. OCTREOTIDE ACETATE [Concomitant]
     Route: 058
  5. SOLGOL [Concomitant]
     Route: 048
  6. NORFLOXACIN [Concomitant]
     Indication: ANTIBIOTIC PROPHYLAXIS
     Route: 048

REACTIONS (3)
  - DRUG INTERACTION [None]
  - HEPATIC ENCEPHALOPATHY [None]
  - RENAL FAILURE [None]
